FAERS Safety Report 9667816 (Version 6)
Quarter: 2014Q2

REPORT INFORMATION
  Report Type: Spontaneous
  Country: CH (occurrence: CH)
  Receive Date: 20131104
  Receipt Date: 20140630
  Transmission Date: 20141212
  Serious: Yes (Death)
  Sender: FDA-Public Use
  Company Number: CH-GLAXOSMITHKLINE-B0938872A

PATIENT
  Age: 71 Year
  Sex: Male

DRUGS (1)
  1. ARZERRA [Suspect]
     Indication: CHRONIC LYMPHOCYTIC LEUKAEMIA RECURRENT
     Dosage: 300MG PER DAY
     Route: 042
     Dates: start: 20130328, end: 20130328

REACTIONS (14)
  - Myocardial infarction [Fatal]
  - Cardiac arrest [Unknown]
  - Cardiac arrest [Unknown]
  - Angina pectoris [Unknown]
  - Cardiac disorder [Unknown]
  - Malaise [Unknown]
  - Hypertension [Unknown]
  - Tachycardia [Unknown]
  - Hypotension [Unknown]
  - Chest pain [Unknown]
  - Agitation [Unknown]
  - Cardiovascular disorder [Unknown]
  - Blood pressure decreased [Unknown]
  - Infusion related reaction [Unknown]
